FAERS Safety Report 4868406-4 (Version None)
Quarter: 2005Q4

REPORT INFORMATION
  Report Type: 
  Country: None (occurrence: None)
  Receive Date: 20051229
  Receipt Date: 20051222
  Transmission Date: 20060501
  Serious: Yes (Hospitalization)
  Sender: FDA-Public Use
  Company Number: CH-GLAXOSMITHKLINE-B0404777A

PATIENT
  Age: 71 Year
  Sex: Male

DRUGS (9)
  1. DEROXAT [Suspect]
     Indication: DRUG USE FOR UNKNOWN INDICATION
     Route: 048
  2. ASPIRIN [Suspect]
     Indication: DRUG USE FOR UNKNOWN INDICATION
     Dosage: 100MG PER DAY
     Dates: start: 20051016
  3. PLAVIX [Suspect]
     Indication: DRUG USE FOR UNKNOWN INDICATION
     Dosage: 75MG PER DAY
     Route: 048
  4. METOPROLOL [Concomitant]
     Route: 048
  5. NORVASC [Concomitant]
     Route: 048
  6. COZAAR [Concomitant]
     Route: 048
  7. CARDURA [Concomitant]
     Dosage: 4.85MG PER DAY
     Route: 048
  8. SORTIS [Concomitant]
     Route: 048
  9. PARACETAMOL [Concomitant]
     Dosage: 500MG THREE TIMES PER DAY
     Route: 048

REACTIONS (7)
  - DRUG INTERACTION [None]
  - EXTENSOR PLANTAR RESPONSE [None]
  - HAEMORRHAGIC STROKE [None]
  - HYPERREFLEXIA [None]
  - HYPERTENSION [None]
  - RENAL FAILURE [None]
  - SOMNOLENCE [None]
